FAERS Safety Report 8298097-4 (Version None)
Quarter: 2012Q2

REPORT INFORMATION
  Report Type: 
  Country: None (occurrence: None)
  Receive Date: 20120419
  Receipt Date: 20120409
  Transmission Date: 20120825
  Serious: Yes (Hospitalization, Other)
  Sender: FDA-Public Use
  Company Number: JP-JNJFOC-20111105770

PATIENT
  Sex: Female
  Weight: 41 kg

DRUGS (16)
  1. FENTANYL-100 [Suspect]
     Indication: PAIN
     Route: 062
     Dates: start: 20101127
  2. CODEINE PHOSPHATE [Concomitant]
     Route: 048
     Dates: start: 20101211
  3. CODEINE PHOSPHATE [Concomitant]
     Route: 048
     Dates: start: 20101218
  4. GABAPENTIN [Concomitant]
     Indication: PAIN
     Route: 048
     Dates: start: 20101202
  5. LOXONIN [Concomitant]
     Indication: PAIN
     Route: 062
     Dates: start: 20100830
  6. MOTILIUM [Concomitant]
     Indication: VOMITING
     Route: 048
     Dates: start: 20101128, end: 20101216
  7. ALENDRONATE SODIUM [Concomitant]
     Indication: PAIN
     Route: 065
     Dates: start: 20101115, end: 20110123
  8. CODEINE PHOSPHATE [Concomitant]
     Route: 048
     Dates: start: 20101125, end: 20101127
  9. MAGMITT [Concomitant]
     Route: 048
     Dates: start: 20101125, end: 20101216
  10. MOTILIUM [Concomitant]
     Indication: NAUSEA
     Route: 048
     Dates: start: 20101128, end: 20101216
  11. CODEINE PHOSPHATE [Concomitant]
     Route: 048
     Dates: start: 20101127
  12. LENDORMIN [Concomitant]
     Indication: PAIN
     Route: 048
     Dates: start: 20101117, end: 20110224
  13. CODEINE PHOSPHATE [Concomitant]
     Route: 048
     Dates: start: 20101111, end: 20101124
  14. CODEINE PHOSPHATE [Concomitant]
     Indication: PAIN
     Route: 048
     Dates: start: 20101204
  15. CODEINE PHOSPHATE [Concomitant]
     Route: 048
     Dates: start: 20111125
  16. CODEINE PHOSPHATE [Concomitant]
     Route: 048
     Dates: start: 20101225

REACTIONS (6)
  - HYPERTHERMIA [None]
  - NAUSEA [None]
  - SEPSIS [None]
  - ALTERED STATE OF CONSCIOUSNESS [None]
  - WOUND INFECTION [None]
  - VOMITING [None]
